FAERS Safety Report 5763906-7 (Version None)
Quarter: 2008Q2

REPORT INFORMATION
  Report Type: 
  Country: None (occurrence: None)
  Receive Date: 20080606
  Receipt Date: 20080606
  Transmission Date: 20081010
  Serious: Yes (Hospitalization)
  Sender: FDA-Public Use
  Company Number: None

PATIENT
  Sex: Female
  Weight: 54.8852 kg

DRUGS (2)
  1. VANDETANIB [Suspect]
     Indication: OVARIAN CANCER
     Dosage: 100 MG -TTL DOSE: 1400- QD D1-D21 PO
     Route: 048
     Dates: start: 20080513, end: 20080526
  2. ABRAXANE [Suspect]
     Indication: OVARIAN CANCER
     Dosage: 260 MG/M2 -TTL DOSE: 387- IV ON D1 Q 21 DAYS IV
     Route: 042
     Dates: start: 20080513, end: 20080513

REACTIONS (6)
  - BLOOD CULTURE POSITIVE [None]
  - DIARRHOEA [None]
  - NAUSEA [None]
  - PYREXIA [None]
  - STREPTOCOCCAL INFECTION [None]
  - VOMITING [None]
